FAERS Safety Report 4803323-7 (Version None)
Quarter: 2005Q4

REPORT INFORMATION
  Report Type: 
  Country: None (occurrence: None)
  Receive Date: 20051013
  Receipt Date: 20051003
  Transmission Date: 20060501
  Serious: Yes (Hospitalization)
  Sender: FDA-Public Use
  Company Number: 218318

PATIENT
  Age: 62 Year
  Sex: Female
  Weight: 75.1 kg

DRUGS (3)
  1. AVASTIN(BEVACIZUMAB) PWDR + SOLVENT,INFUSION SOLN, 100MG [Suspect]
     Indication: PANCREATIC CARCINOMA
     Dosage: 1494 MG, Q2W, INTRAVENOUS
     Route: 042
     Dates: start: 20050829, end: 20050920
  2. GEMCITABINE (GEMCITABINE HYDROCHLORIDE) [Suspect]
     Indication: PANCREATIC CARCINOMA
     Dosage: 3330 MG, UNK, INTRAVENOUS
     Route: 042
     Dates: start: 20050829, end: 20050920
  3. OXALIPLATIN (OXALIPLATIN) [Suspect]
     Indication: PANCREATIC CARCINOMA
     Dosage: 342 MG, Q2W, INTRAVENOUS
     Route: 042
     Dates: start: 20050829, end: 20050921

REACTIONS (5)
  - DIARRHOEA [None]
  - NAUSEA [None]
  - PYREXIA [None]
  - URINARY TRACT INFECTION [None]
  - VOMITING [None]
